FAERS Safety Report 13363002 (Version 1)
Quarter: 2017Q1

REPORT INFORMATION
  Report Type: Spontaneous
  Country: RU (occurrence: RU)
  Receive Date: 20170323
  Receipt Date: 20170323
  Transmission Date: 20170429
  Serious: Yes (Hospitalization, Other)
  Sender: FDA-Public Use
  Company Number: RU-ASTRAZENECA-2017SE29231

PATIENT
  Age: 81 Year
  Sex: Female
  Weight: 80 kg

DRUGS (11)
  1. CONCOR [Concomitant]
     Active Substance: BISOPROLOL FUMARATE
     Dates: start: 20170118, end: 20170228
  2. BRILINTA [Suspect]
     Active Substance: TICAGRELOR
     Indication: MYOCARDIAL INFARCTION
     Route: 048
     Dates: start: 20170118
  3. LORISTA [Concomitant]
     Active Substance: LOSARTAN POTASSIUM
     Dates: start: 20170118
  4. TORVACARD [Concomitant]
     Active Substance: ATORVASTATIN CALCIUM
     Dates: start: 20170118, end: 20170228
  5. SYDNOPHARM [Concomitant]
     Dates: start: 20170118, end: 20170228
  6. METFORMIN [Concomitant]
     Active Substance: METFORMIN HYDROCHLORIDE
     Dates: start: 20170118
  7. L-THYROXIN [Concomitant]
     Active Substance: LEVOTHYROXINE SODIUM
     Dates: start: 20170118
  8. ASPIRIN. [Concomitant]
     Active Substance: ASPIRIN
     Dates: start: 20170118
  9. VEROSPIRON [Concomitant]
     Active Substance: SPIRONOLACTONE
     Dates: start: 20170118, end: 20170228
  10. METOPROLOL. [Concomitant]
     Active Substance: METOPROLOL
     Dates: start: 20170118
  11. AMLODIPIN [Concomitant]
     Active Substance: AMLODIPINE BESYLATE
     Dates: start: 20170118, end: 20170228

REACTIONS (1)
  - Myocardial infarction [Unknown]

NARRATIVE: CASE EVENT DATE: 20170228
